FAERS Safety Report 5276385-3 (Version None)
Quarter: 2007Q1

REPORT INFORMATION
  Report Type: 
  Country: None (occurrence: None)
  Receive Date: 20070326
  Receipt Date: 20070312
  Transmission Date: 20070707
  Serious: Yes (Other)
  Sender: FDA-Public Use
  Company Number: US-SANOFI-SYNTHELABO-A03200702085

PATIENT
  Sex: Male
  Weight: 90.7 kg

DRUGS (3)
  1. ZOLOFT [Concomitant]
     Indication: DEPRESSION
     Route: 065
  2. PEG-INTRON [Concomitant]
     Indication: HEPATITIS C
     Dosage: UNK
     Route: 065
  3. AMBIEN [Suspect]
     Indication: INSOMNIA
     Route: 048
     Dates: start: 20011228, end: 20050730

REACTIONS (3)
  - AMNESIA [None]
  - ROAD TRAFFIC ACCIDENT [None]
  - SLEEP WALKING [None]
